FAERS Safety Report 13064156 (Version 1)
Quarter: 2016Q4

REPORT INFORMATION
  Report Type: Spontaneous
  Country: US (occurrence: US)
  Receive Date: 20161227
  Receipt Date: 20161227
  Transmission Date: 20170207
  Serious: No
  Sender: FDA-Public Use
  Company Number: US-PFIZER INC-2016594000

PATIENT
  Age: 62 Year
  Sex: Male
  Weight: 86 kg

DRUGS (9)
  1. PERCOCET [Suspect]
     Active Substance: ACETAMINOPHEN\OXYCODONE HYDROCHLORIDE
     Indication: HEADACHE
     Dosage: UNK
     Dates: end: 20161114
  2. ADVIL [Concomitant]
     Active Substance: IBUPROFEN
     Indication: PAIN
  3. IBUPROFEN. [Concomitant]
     Active Substance: IBUPROFEN
     Indication: PAIN
  4. MORPHINE SULFATE. [Suspect]
     Active Substance: MORPHINE SULFATE
     Indication: HEADACHE
     Dosage: UNK
     Dates: end: 20161114
  5. TORADOL [Suspect]
     Active Substance: KETOROLAC TROMETHAMINE
     Indication: HEADACHE
     Dosage: UNK
     Dates: end: 20161114
  6. ADVIL [Concomitant]
     Active Substance: IBUPROFEN
     Indication: PAIN
  7. IBUPROFEN. [Concomitant]
     Active Substance: IBUPROFEN
     Indication: HEADACHE
     Dosage: UNK, 2X/DAY, ^200MG, ONE OR TWO TABLETS BY MOUTH TWICE DAILY^
     Route: 048
     Dates: end: 20161114
  8. ADVIL [Concomitant]
     Active Substance: IBUPROFEN
     Indication: HEADACHE
     Dosage: UNK, 2X/DAY, ^200MG, ONE OR TWO TABLETS BY MOUTH TWICE DAILY^
     Route: 048
     Dates: end: 20161114
  9. LOSARTAN. [Concomitant]
     Active Substance: LOSARTAN
     Dosage: UNK

REACTIONS (1)
  - Drug ineffective [Unknown]
